FAERS Safety Report 5500397-5 (Version None)
Quarter: 2007Q4

REPORT INFORMATION
  Report Type: 
  Country: None (occurrence: None)
  Receive Date: 20071024
  Receipt Date: 20071024
  Transmission Date: 20080405
  Serious: No
  Sender: FDA-Public Use
  Company Number: None

PATIENT
  Age: 48 Year
  Sex: Male

DRUGS (1)
  1. PREGABALIN [Suspect]
     Indication: NEURALGIA
     Dosage: 75MG BID PO
     Route: 048
     Dates: start: 20070917, end: 20070927

REACTIONS (2)
  - CONDITION AGGRAVATED [None]
  - MIGRAINE [None]
